FAERS Safety Report 15582584 (Version 1)
Quarter: 2018Q4

REPORT INFORMATION
  Report Type: Spontaneous
  Country: CN (occurrence: CN)
  Receive Date: 20181103
  Receipt Date: 20181103
  Transmission Date: 20190205
  Serious: Yes (Hospitalization)
  Sender: FDA-Public Use
  Company Number: CN-ROCHE-2208097

PATIENT
  Age: 81 Year
  Sex: Female
  Weight: 51 kg

DRUGS (4)
  1. AVASTIN [Suspect]
     Active Substance: BEVACIZUMAB
     Indication: ADENOCARCINOMA OF COLON
     Dosage: ON DAY 1
     Route: 041
     Dates: start: 20180809, end: 20180809
  2. AVASTIN [Suspect]
     Active Substance: BEVACIZUMAB
     Indication: METASTASES TO PERITONEUM
     Dosage: ON DAY 1
     Route: 033
     Dates: start: 20180809, end: 20180809
  3. TEGAFUR [Suspect]
     Active Substance: TEGAFUR
     Indication: METASTASES TO PERITONEUM
  4. TEGAFUR [Suspect]
     Active Substance: TEGAFUR
     Indication: ADENOCARCINOMA OF COLON
     Route: 048
     Dates: start: 20180809, end: 20180809

REACTIONS (3)
  - Bone marrow failure [Unknown]
  - Intentional product use issue [Unknown]
  - Off label use [Unknown]

NARRATIVE: CASE EVENT DATE: 20180820
